FAERS Safety Report 25359710 (Version 1)
Quarter: 2025Q2

REPORT INFORMATION
  Report Type: Spontaneous
  Country: US (occurrence: US)
  Receive Date: 20250526
  Receipt Date: 20250526
  Transmission Date: 20250717
  Serious: No
  Sender: ABBVIE
  Company Number: US-ABBVIE-6288834

PATIENT

DRUGS (1)
  1. BOTOX [Suspect]
     Active Substance: ONABOTULINUMTOXINA
     Indication: Vestibular migraine
     Route: 065
     Dates: start: 2024, end: 2024

REACTIONS (6)
  - Vision blurred [Unknown]
  - Muscular weakness [Unknown]
  - Drug ineffective [Unknown]
  - Muscle atrophy [Unknown]
  - Hypoaesthesia [Unknown]
  - Vertigo [Unknown]
